FAERS Safety Report 6046370-2 (Version None)
Quarter: 2009Q1

REPORT INFORMATION
  Report Type: 
  Country: None (occurrence: None)
  Receive Date: 20090122
  Receipt Date: 20090112
  Transmission Date: 20090719
  Serious: Yes (Hospitalization)
  Sender: FDA-Public Use
  Company Number: US-BIOGENIDEC-2007BI023109

PATIENT
  Age: 54 Year
  Sex: Female

DRUGS (2)
  1. AVONEX [Suspect]
     Indication: MULTIPLE SCLEROSIS
     Route: 030
     Dates: start: 19980601, end: 19990719
  2. AVONEX [Suspect]
     Route: 030
     Dates: start: 20040526, end: 20080101

REACTIONS (7)
  - COGNITIVE DISORDER [None]
  - FALL [None]
  - FAT EMBOLISM [None]
  - HEART RATE IRREGULAR [None]
  - HIP FRACTURE [None]
  - LOWER LIMB FRACTURE [None]
  - MULTIPLE SCLEROSIS [None]
